FAERS Safety Report 6903071-3 (Version None)
Quarter: 2010Q3

REPORT INFORMATION
  Report Type: 
  Country: None (occurrence: None)
  Receive Date: 20100803
  Receipt Date: 20080731
  Transmission Date: 20110219
  Serious: Yes (Other)
  Sender: FDA-Public Use
  Company Number: US-PFIZER INC-2008064258

PATIENT
  Sex: Male
  Weight: 58.1 kg

DRUGS (2)
  1. LYRICA [Suspect]
     Route: 048
     Dates: start: 20080219, end: 20080220
  2. LORTAB [Concomitant]

REACTIONS (2)
  - DYSPNOEA [None]
  - PHARYNGEAL OEDEMA [None]
